FAERS Safety Report 22311024 (Version 3)
Quarter: 2023Q2

REPORT INFORMATION
  Report Type: Spontaneous
  Country: US (occurrence: US)
  Receive Date: 20230511
  Receipt Date: 20230601
  Transmission Date: 20230722
  Serious: No
  Sender: FDA-Public Use
  Company Number: US-PFIZER INC-PV202300080971

PATIENT
  Age: 66 Year
  Sex: Female

DRUGS (2)
  1. IBRANCE [Suspect]
     Active Substance: PALBOCICLIB
     Dosage: 100 MG, CYCLIC (ONCE A DAY (21 DAY ON, 7 DAY OFF)
  2. IBRANCE [Suspect]
     Active Substance: PALBOCICLIB
     Dosage: 75 MG, CYCLIC  (ONCE A DAY (21 DAY ON, 7 DAY OFF)

REACTIONS (4)
  - Full blood count decreased [Unknown]
  - Constipation [Unknown]
  - Alopecia [Unknown]
  - White blood cell count decreased [Unknown]
